FAERS Safety Report 4896636-4 (Version None)
Quarter: 2006Q1

REPORT INFORMATION
  Report Type: 
  Country: None (occurrence: None)
  Receive Date: 20060131
  Receipt Date: 20051118
  Transmission Date: 20060701
  Serious: Yes (Other)
  Sender: FDA-Public Use
  Company Number: PHEH2005US12727

PATIENT
  Age: 56 Year
  Sex: Male
  Weight: 31.746 kg

DRUGS (2)
  1. CLOZARIL [Suspect]
     Indication: PSYCHOTIC DISORDER
     Dosage: 275 MG, QD
     Route: 048
     Dates: start: 20050919
  2. HYDROCHLOROTHIAZIDE [Concomitant]
     Indication: RENAL DISORDER
     Dosage: 25 MG, QD
     Route: 048
     Dates: start: 20050101

REACTIONS (7)
  - OPTIC NEURITIS [None]
  - PAPILLOEDEMA [None]
  - PARANEOPLASTIC SYNDROME [None]
  - RENAL CELL CARCINOMA STAGE UNSPECIFIED [None]
  - RENAL TUMOUR EXCISION [None]
  - VISION BLURRED [None]
  - VISUAL ACUITY REDUCED [None]
